FAERS Safety Report 5423162-6 (Version None)
Quarter: 2007Q3

REPORT INFORMATION
  Report Type: 
  Country: None (occurrence: None)
  Receive Date: 20070821
  Receipt Date: 20070814
  Transmission Date: 20080115
  Serious: Yes (Death)
  Sender: FDA-Public Use
  Company Number: CLOF-10421

PATIENT
  Age: 58 Year
  Sex: Male

DRUGS (5)
  1. CLOFARABINE. MFR:  GENZYME [Suspect]
     Indication: ACUTE MYELOID LEUKAEMIA
     Dosage: 30 MG/M2 QD X 5 IV
     Route: 042
     Dates: start: 20061213
  2. CYTARABINE [Suspect]
     Indication: ACUTE MYELOID LEUKAEMIA
     Dosage: 750 MG/M2 QD X 5 IV
     Route: 042
     Dates: start: 20061212, end: 20061216
  3. TAZOCILLINE [Concomitant]
  4. VANCOMYCIN [Concomitant]
  5. ONDANSETRON [Concomitant]

REACTIONS (3)
  - ERYTHEMA [None]
  - MULTI-ORGAN FAILURE [None]
  - TOXIC EPIDERMAL NECROLYSIS [None]
